FAERS Safety Report 14892706 (Version 1)
Quarter: 2018Q2

REPORT INFORMATION
  Report Type: Spontaneous
  Country: MX (occurrence: MX)
  Receive Date: 20180514
  Receipt Date: 20180514
  Transmission Date: 20180711
  Serious: Yes (Death, Other)
  Sender: FDA-Public Use
  Company Number: MX-GLAXOSMITHKLINE-MX2018GSK084658

PATIENT
  Sex: Female
  Weight: 43.5 kg

DRUGS (4)
  1. SILDENAFIL. [Concomitant]
     Active Substance: SILDENAFIL
     Indication: PULMONARY HYPERTENSION
     Dosage: 150 MG, UNK
     Dates: start: 201209, end: 2018
  2. BENLYSTA [Suspect]
     Active Substance: BELIMUMAB
     Indication: PRODUCT USED FOR UNKNOWN INDICATION
     Dosage: UNK
  3. ILOPROST. [Concomitant]
     Active Substance: ILOPROST
     Indication: PULMONARY HYPERTENSION
     Dosage: 6 ML, UNK
     Dates: start: 20171129, end: 2018
  4. ACENOCUMAROL [Concomitant]
     Active Substance: ACENOCOUMAROL
     Indication: ATRIAL FLUTTER
     Dosage: 1 MG, UNK
     Dates: start: 2010, end: 2018

REACTIONS (1)
  - Pulmonary hypertension [Fatal]
